FAERS Safety Report 18478026 (Version 3)
Quarter: 2022Q2

REPORT INFORMATION
  Report Type: Other
  Country: US (occurrence: None)
  Receive Date: 20201108
  Receipt Date: 20220405
  Transmission Date: 20220720
  Serious: Yes (Other)
  Sender: FDA-Public Use
  Company Number: US-ROCHE-2707517

PATIENT
  Sex: Female

DRUGS (1)
  1. VALCYTE [Suspect]
     Active Substance: VALGANCICLOVIR HYDROCHLORIDE
     Indication: Liver transplant
     Dosage: TAKE 2 TABLETS (900 MG) BY MOUTH 2 TIMES A DAY
     Route: 048
     Dates: start: 20201104

REACTIONS (2)
  - Off label use [Unknown]
  - Liver transplant rejection [Unknown]
